FAERS Safety Report 14585875 (Version 1)
Quarter: 2018Q1

REPORT INFORMATION
  Report Type: Spontaneous
  Country: US (occurrence: US)
  Receive Date: 20180301
  Receipt Date: 20180301
  Transmission Date: 20180509
  Serious: Yes (Other)
  Sender: FDA-Public Use
  Company Number: US-TEVA-2018-US-856177

PATIENT
  Sex: Female

DRUGS (3)
  1. METRONIDAZOLE. [Suspect]
     Active Substance: METRONIDAZOLE
     Indication: PROPHYLAXIS
     Route: 065
     Dates: start: 20180130, end: 20180201
  2. CLINDAMYCIN. [Concomitant]
     Active Substance: CLINDAMYCIN
     Indication: CLOSTRIDIUM DIFFICILE INFECTION
  3. CLINDAMYCIN. [Concomitant]
     Active Substance: CLINDAMYCIN
     Indication: VAGINAL INFECTION
     Route: 065

REACTIONS (7)
  - Feeling abnormal [Recovering/Resolving]
  - Choking [Recovering/Resolving]
  - Drug ineffective [Unknown]
  - Product size issue [Unknown]
  - Dizziness [Recovering/Resolving]
  - Asthenia [Recovering/Resolving]
  - Wrong technique in product usage process [Unknown]

NARRATIVE: CASE EVENT DATE: 20180131
